FAERS Safety Report 18039990 (Version 1)
Quarter: 2020Q3

REPORT INFORMATION
  Report Type: Other
  Country: FR (occurrence: FR)
  Receive Date: 20200717
  Receipt Date: 20200717
  Transmission Date: 20201103
  Serious: Yes (Death, Hospitalization)
  Sender: FDA-Public Use
  Company Number: FR-INCYTE CORPORATION-2020IN006501

PATIENT

DRUGS (1)
  1. JAKAVI [Suspect]
     Active Substance: RUXOLITINIB
     Indication: MYELOFIBROSIS
     Dosage: 2 DF, QD
     Route: 048
     Dates: start: 20180718

REACTIONS (1)
  - T-cell lymphoma [Fatal]

NARRATIVE: CASE EVENT DATE: 20200417
